FAERS Safety Report 4833094-X (Version None)
Quarter: 2005Q4

REPORT INFORMATION
  Report Type: 
  Country: None (occurrence: None)
  Receive Date: 20051117
  Receipt Date: 20051104
  Transmission Date: 20060501
  Serious: Yes (Other)
  Sender: FDA-Public Use
  Company Number: 2005151782

PATIENT
  Age: 55 Year
  Sex: Female
  Weight: 54.4316 kg

DRUGS (10)
  1. BEXTRA [Suspect]
     Indication: BACK PAIN
     Dosage: UNKNOWN (20 MG, UP TO TWICE DAILY AS NEEDED), ORAL
     Route: 048
     Dates: start: 20040801, end: 20041201
  2. BEXTRA [Suspect]
     Indication: CARPAL TUNNEL SYNDROME
     Dosage: UNKNOWN (20 MG, UP TO TWICE DAILY AS NEEDED), ORAL
     Route: 048
     Dates: start: 20040801, end: 20041201
  3. BEXTRA [Suspect]
     Indication: ROTATOR CUFF SYNDROME
     Dosage: UNKNOWN (20 MG, UP TO TWICE DAILY AS NEEDED), ORAL
     Route: 048
     Dates: start: 20040801, end: 20041201
  4. BEXTRA [Suspect]
     Indication: SPINAL DISORDER
     Dosage: UNKNOWN (20 MG, UP TO TWICE DAILY AS NEEDED), ORAL
     Route: 048
     Dates: start: 20040801, end: 20041201
  5. CELEBREX [Suspect]
     Indication: BACK PAIN
     Dosage: UNKNOWN (200 MG, UP TO TWICE DAILY AS NEEDED), ORAL
     Route: 048
     Dates: start: 20041201, end: 20051001
  6. CELEBREX [Suspect]
     Indication: CARPAL TUNNEL SYNDROME
     Dosage: UNKNOWN (200 MG, UP TO TWICE DAILY AS NEEDED), ORAL
     Route: 048
     Dates: start: 20041201, end: 20051001
  7. CELEBREX [Suspect]
     Indication: ROTATOR CUFF SYNDROME
     Dosage: UNKNOWN (200 MG, UP TO TWICE DAILY AS NEEDED), ORAL
     Route: 048
     Dates: start: 20041201, end: 20051001
  8. CELEBREX [Suspect]
     Indication: SPINAL DISORDER
     Dosage: UNKNOWN (200 MG, UP TO TWICE DAILY AS NEEDED), ORAL
     Route: 048
     Dates: start: 20041201, end: 20051001
  9. FOSAMAX [Concomitant]
  10. LIPITOR [Concomitant]

REACTIONS (5)
  - ALOPECIA [None]
  - CHAPPED LIPS [None]
  - HERPES SIMPLEX [None]
  - SYSTEMIC LUPUS ERYTHEMATOSUS [None]
  - THERAPY NON-RESPONDER [None]
